FAERS Safety Report 6700020-8 (Version None)
Quarter: 2010Q2

REPORT INFORMATION
  Report Type: 
  Country: None (occurrence: None)
  Receive Date: 20100422
  Receipt Date: 20100310
  Transmission Date: 20101027
  Serious: No
  Sender: FDA-Public Use
  Company Number: 2010AL000067

PATIENT
  Age: 63 Year
  Sex: Female
  Weight: 102.5129 kg

DRUGS (1)
  1. FOLOTYN [Suspect]
     Indication: T-CELL LYMPHOMA
     Dosage: 40 MG;IV
     Route: 042
     Dates: start: 20100310, end: 20100310

REACTIONS (1)
  - MEDICATION ERROR [None]
